FAERS Safety Report 5479295-1 (Version None)
Quarter: 2007Q4

REPORT INFORMATION
  Report Type: 
  Country: None (occurrence: None)
  Receive Date: 20071008
  Receipt Date: 20071003
  Transmission Date: 20080405
  Serious: Yes (Death)
  Sender: FDA-Public Use
  Company Number: PHFR2007GB02869

PATIENT
  Age: 60 Year
  Sex: Male

DRUGS (12)
  1. AZATHIOPRINE [Concomitant]
     Dosage: 100 MG, QD
     Route: 048
     Dates: end: 19970108
  2. PREDNISOLONE [Concomitant]
     Route: 048
     Dates: end: 19980922
  3. AMLODIPINE BESYLATE [Concomitant]
     Dosage: 10 MG, QD
     Route: 065
  4. CO-CODAMOL [Concomitant]
     Dosage: 8MG / 500MG, QD
     Route: 065
  5. GAVISCON LIQUID ^BOEHRINGER INGELHEIM^ [Concomitant]
  6. ISONIAZID [Concomitant]
     Dosage: 100 MG, QD
     Route: 065
  7. LACTULOSE [Concomitant]
     Dosage: 10 ML, BID
     Route: 065
  8. OMEPRAZOLE [Concomitant]
     Dosage: 20 MG, QD
     Route: 065
  9. PYRIDOXINE HYDROCHLORIDE [Concomitant]
     Dosage: 10 MG, QD
     Route: 065
  10. NEORAL [Suspect]
     Indication: RENAL TRANSPLANT
  11. SANDIMMUNE [Suspect]
     Indication: RENAL TRANSPLANT
     Dosage: 250 MG, QD
     Route: 065
  12. CICLOSPORIN [Suspect]
     Indication: RENAL TRANSPLANT
     Dosage: UNK, UNK
     Route: 048
     Dates: start: 19910518

REACTIONS (5)
  - AZOTAEMIA [None]
  - HYPERKALAEMIA [None]
  - KAPOSI'S SARCOMA [None]
  - LYMPHOEDEMA [None]
  - SKIN LESION [None]
